FAERS Safety Report 22315742 (Version 1)
Quarter: 2023Q2

REPORT INFORMATION
  Report Type: Spontaneous
  Country: US (occurrence: US)
  Receive Date: 20230512
  Receipt Date: 20230512
  Transmission Date: 20230722
  Serious: Yes (Hospitalization)
  Sender: FDA-Public Use
  Company Number: US-TEVA-2023-US-2885585

PATIENT
  Age: 20 Year
  Sex: Female
  Weight: 50.79 kg

DRUGS (2)
  1. DANAZOL [Interacting]
     Active Substance: DANAZOL
     Indication: Product used for unknown indication
     Route: 065
  2. JAKAFI [Interacting]
     Active Substance: RUXOLITINIB
     Indication: Bone marrow transplant
     Dosage: 10 MILLIGRAM DAILY;
     Route: 048
     Dates: start: 202303

REACTIONS (2)
  - Drug interaction [Unknown]
  - Off label use [Unknown]

NARRATIVE: CASE EVENT DATE: 20230301
